FAERS Safety Report 20010970 (Version 1)
Quarter: 2021Q4

REPORT INFORMATION
  Report Type: Spontaneous
  Country: US (occurrence: US)
  Receive Date: 20211029
  Receipt Date: 20211029
  Transmission Date: 20220303
  Serious: Yes (Other)
  Sender: FDA-Public Use
  Company Number: None

PATIENT
  Age: 45 Year
  Sex: Female
  Weight: 97 kg

DRUGS (6)
  1. ZOLMITRIPTAN OD [Suspect]
     Active Substance: ZOLMITRIPTAN
     Indication: Migraine
     Route: 048
     Dates: start: 20211028, end: 20211028
  2. Propranolol 40mg twice daily [Concomitant]
     Dates: start: 20171001
  3. LEVOTHYROXINE [Concomitant]
     Active Substance: LEVOTHYROXINE
     Dates: start: 20151001
  4. LAMOTRIGINE [Concomitant]
     Active Substance: LAMOTRIGINE
     Dates: start: 20170901
  5. TOPIRAMATE [Concomitant]
     Active Substance: TOPIRAMATE
     Dates: start: 20171001
  6. BUPROPION [Concomitant]
     Active Substance: BUPROPION
     Dates: start: 20171001

REACTIONS (4)
  - Nausea [None]
  - Dyspnoea [None]
  - Dizziness [None]
  - Headache [None]

NARRATIVE: CASE EVENT DATE: 20211028
